FAERS Safety Report 19458443 (Version 1)
Quarter: 2021Q2

REPORT INFORMATION
  Report Type: Spontaneous
  Country: US (occurrence: US)
  Receive Date: 20210624
  Receipt Date: 20210624
  Transmission Date: 20210717
  Serious: Yes (Other)
  Sender: FDA-Public Use
  Company Number: None

PATIENT
  Age: 54 Year
  Sex: Female
  Weight: 76.5 kg

DRUGS (14)
  1. OLUMIANT [Suspect]
     Active Substance: BARICITINIB
     Indication: RHEUMATOID ARTHRITIS
     Route: 048
     Dates: start: 20210610, end: 20210620
  2. LOSARTAN/HTCZ 100?12.5 TAB [Concomitant]
     Active Substance: HYDROCHLOROTHIAZIDE\LOSARTAN
  3. LORAZEPAM. [Concomitant]
     Active Substance: LORAZEPAM
  4. BLACK COHOSH [Concomitant]
     Active Substance: BLACK COHOSH
  5. MELATONIN [Concomitant]
     Active Substance: MELATONIN
  6. AMBIEN [Concomitant]
     Active Substance: ZOLPIDEM TARTRATE
  7. CLAIRTIN [Concomitant]
  8. VITAMIN B?COMPLEX [Concomitant]
     Active Substance: DEXPANTHENOL\NIACINAMIDE\PYRIDOXINE HYDROCHLORIDE\RIBOFLAVIN 5^-PHOSPHATE SODIUM\THIAMINE HYDROCHLORIDE
  9. MAXALT [Concomitant]
     Active Substance: RIZATRIPTAN BENZOATE
  10. FOLIC ACID. [Concomitant]
     Active Substance: FOLIC ACID
  11. VITAMIN D2 [Concomitant]
     Active Substance: ERGOCALCIFEROL
  12. LYSINE [Concomitant]
     Active Substance: LYSINE
  13. WELLBUTRIN SR [Concomitant]
     Active Substance: BUPROPION HYDROCHLORIDE
  14. MAGNESIUM OXIDE. [Concomitant]
     Active Substance: MAGNESIUM OXIDE

REACTIONS (8)
  - Hyperhidrosis [None]
  - Somnolence [None]
  - Disorientation [None]
  - Eructation [None]
  - Nausea [None]
  - Dizziness [None]
  - Hypotension [None]
  - Loss of consciousness [None]

NARRATIVE: CASE EVENT DATE: 20210620
